FAERS Safety Report 13097150 (Version 1)
Quarter: 2017Q1

REPORT INFORMATION
  Report Type: Spontaneous
  Country: US (occurrence: US)
  Receive Date: 20170107
  Receipt Date: 20170107
  Transmission Date: 20170428
  Serious: Yes (Life-Threatening)
  Sender: FDA-Public Use
  Company Number: None

PATIENT
  Age: 69 Year
  Sex: Male
  Weight: 99.45 kg

DRUGS (1)
  1. LUMASON [Suspect]
     Active Substance: SULFUR HEXAFLUORIDE
     Indication: LEFT VENTRICULAR DYSFUNCTION
     Dosage: ?          OTHER FREQUENCY:ONCE;?
     Route: 042
     Dates: start: 20170106, end: 20170106

REACTIONS (6)
  - Dizziness [None]
  - Urticaria [None]
  - Nausea [None]
  - Hypotension [None]
  - Tachycardia [None]
  - Loss of consciousness [None]

NARRATIVE: CASE EVENT DATE: 20170106
